FAERS Safety Report 13042733 (Version 1)
Quarter: 2016Q4

REPORT INFORMATION
  Report Type: Spontaneous
  Country: US (occurrence: US)
  Receive Date: 20161219
  Receipt Date: 20161219
  Transmission Date: 20170207
  Serious: No
  Sender: FDA-Public Use
  Company Number: US-SEPTODONT-201603585

PATIENT

DRUGS (1)
  1. CARBOCAINE [Suspect]
     Active Substance: MEPIVACAINE HYDROCHLORIDE
     Indication: LOCAL ANAESTHESIA
     Dosage: UP TO FOUR CARPULES FOR MANDIBULAR BLOCK INJECTION
     Route: 004

REACTIONS (1)
  - Drug ineffective [Unknown]
